FAERS Safety Report 15523204 (Version 2)
Quarter: 2019Q2

REPORT INFORMATION
  Report Type: Spontaneous
  Country: US (occurrence: US)
  Receive Date: 20181018
  Receipt Date: 20190515
  Transmission Date: 20190711
  Serious: Yes (Other)
  Sender: FDA-Public Use
  Company Number: US-ASTRAZENECA-2018SF32264

PATIENT
  Sex: Male
  Weight: 114.8 kg

DRUGS (30)
  1. CLONIDINE. [Concomitant]
     Active Substance: CLONIDINE
  2. DIOVAN [Concomitant]
     Active Substance: VALSARTAN
  3. LOVAZA [Concomitant]
     Active Substance: OMEGA-3-ACID ETHYL ESTERS
  4. TRAMADOL. [Concomitant]
     Active Substance: TRAMADOL
  5. SUDOGEST [Concomitant]
     Active Substance: PSEUDOEPHEDRINE HYDROCHLORIDE
  6. NEXIUM [Suspect]
     Active Substance: ESOMEPRAZOLE MAGNESIUM
     Route: 048
     Dates: start: 2008, end: 2018
  7. CEPHALEXIN. [Concomitant]
     Active Substance: CEPHALEXIN
  8. FINASTERIDE. [Concomitant]
     Active Substance: FINASTERIDE
  9. MINOXIDIL. [Concomitant]
     Active Substance: MINOXIDIL
  10. NEXIUM [Suspect]
     Active Substance: ESOMEPRAZOLE MAGNESIUM
     Dosage: 40 MG DAILY
     Route: 048
     Dates: start: 2000, end: 2018
  11. ACYCLOVIR. [Concomitant]
     Active Substance: ACYCLOVIR
  12. CIPROFLOXACIN. [Concomitant]
     Active Substance: CIPROFLOXACIN
  13. LABETALOL [Concomitant]
     Active Substance: LABETALOL\LABETALOL HYDROCHLORIDE
  14. PROAIR HFA [Concomitant]
     Active Substance: ALBUTEROL SULFATE
  15. SILDENAFIL. [Concomitant]
     Active Substance: SILDENAFIL
  16. ATORVASTATIN [Concomitant]
     Active Substance: ATORVASTATIN
  17. PRILOSEC [Suspect]
     Active Substance: OMEPRAZOLE MAGNESIUM
     Dosage: 20 MG DAILY
     Route: 048
     Dates: start: 2000, end: 2010
  18. CIALIS [Concomitant]
     Active Substance: TADALAFIL
  19. FEXOFENADINE [Concomitant]
     Active Substance: FEXOFENADINE\FEXOFENADINE HYDROCHLORIDE
  20. FUROSEMIDE. [Concomitant]
     Active Substance: FUROSEMIDE
  21. HYDRALAZINE [Concomitant]
     Active Substance: HYDRALAZINE HYDROCHLORIDE
  22. KLOR-CON [Concomitant]
     Active Substance: POTASSIUM CHLORIDE
  23. LEVOFLOXACIN. [Concomitant]
     Active Substance: LEVOFLOXACIN
  24. VALSARTAN. [Concomitant]
     Active Substance: VALSARTAN
  25. PRILOSEC [Suspect]
     Active Substance: OMEPRAZOLE MAGNESIUM
     Route: 048
     Dates: start: 2000, end: 2018
  26. NEXIUM [Suspect]
     Active Substance: ESOMEPRAZOLE MAGNESIUM
     Route: 048
     Dates: start: 2005, end: 2009
  27. BENICAR [Concomitant]
     Active Substance: OLMESARTAN MEDOXOMIL
  28. SIMVASTATIN. [Concomitant]
     Active Substance: SIMVASTATIN
  29. ALLOPURINOL. [Concomitant]
     Active Substance: ALLOPURINOL
  30. AZITHROMYCIN ANHYDROUS. [Concomitant]
     Active Substance: AZITHROMYCIN ANHYDROUS

REACTIONS (2)
  - Chronic kidney disease [Not Recovered/Not Resolved]
  - Renal failure [Not Recovered/Not Resolved]
